FAERS Safety Report 15222782 (Version 1)
Quarter: 2018Q3

REPORT INFORMATION
  Report Type: Spontaneous
  Country: US (occurrence: US)
  Receive Date: 20180731
  Receipt Date: 20180731
  Transmission Date: 20181010
  Serious: Yes (Hospitalization, Other)
  Sender: FDA-Public Use
  Company Number: US-SHIRE-US201827770

PATIENT
  Age: 65 Year
  Sex: Male

DRUGS (1)
  1. GATTEX [Suspect]
     Active Substance: TEDUGLUTIDE\WATER
     Indication: SHORT-BOWEL SYNDROME
     Dosage: 0.375(UNKNOWN UNIT),1X/DAY:QD
     Route: 065
     Dates: start: 20170525

REACTIONS (2)
  - Thrombosis [Recovering/Resolving]
  - Nephrolithiasis [Unknown]

NARRATIVE: CASE EVENT DATE: 20180624
